FAERS Safety Report 4318664-X (Version None)
Quarter: 2004Q1

REPORT INFORMATION
  Report Type: 
  Country: None (occurrence: None)
  Receive Date: 20040315
  Receipt Date: 20040305
  Transmission Date: 20041129
  Serious: Yes (Hospitalization, Other)
  Sender: FDA-Public Use
  Company Number: 2004003742

PATIENT
  Age: 56 Year
  Sex: Male

DRUGS (4)
  1. LIPITOR [Suspect]
     Indication: HYPERLIPIDAEMIA
     Dosage: 10 MG (DAILY); ORAL
     Route: 048
     Dates: start: 20031105, end: 20041102
  2. NIFEDIPINE [Concomitant]
  3. CANDESARTAN CILEXETIL [Concomitant]
  4. TICLOPIDINE HYDROCHLORIDE [Concomitant]

REACTIONS (4)
  - DEHYDRATION [None]
  - PNEUMONIA [None]
  - RENAL FAILURE [None]
  - RHABDOMYOLYSIS [None]
